FAERS Safety Report 13262009 (Version 1)
Quarter: 2017Q1

REPORT INFORMATION
  Report Type: Report from Study
  Country: DE (occurrence: DE)
  Receive Date: 20170222
  Receipt Date: 20170222
  Transmission Date: 20170428
  Serious: Yes (Other)
  Sender: FDA-Public Use
  Company Number: GXKR2016DE003590

PATIENT
  Sex: Female

DRUGS (1)
  1. OMNITROP [Suspect]
     Active Substance: SOMATROPIN
     Indication: GROWTH HORMONE DEFICIENCY
     Dosage: 0.1 MG/DAY
     Route: 065
     Dates: start: 201510, end: 201602

REACTIONS (4)
  - Maternal exposure during pregnancy [Unknown]
  - Impaired healing [Unknown]
  - Normal newborn [Unknown]
  - Gestational diabetes [Unknown]
